FAERS Safety Report 7427533-8 (Version None)
Quarter: 2011Q2

REPORT INFORMATION
  Report Type: 
  Country: None (occurrence: None)
  Receive Date: 20110420
  Receipt Date: 20110414
  Transmission Date: 20111010
  Serious: Yes (Hospitalization)
  Sender: FDA-Public Use
  Company Number: US-GILEAD-2011-0037424

PATIENT
  Sex: Female

DRUGS (13)
  1. LASIX [Concomitant]
  2. CLARITIN [Concomitant]
  3. XOPENEX [Concomitant]
  4. POTASSIUM [Concomitant]
  5. COUMADIN [Concomitant]
  6. ULTRAM [Concomitant]
  7. LETAIRIS [Suspect]
     Indication: PULMONARY HYPERTENSION
     Route: 048
     Dates: start: 20080924
  8. LOPRESSOR [Concomitant]
  9. ATROVENT [Concomitant]
  10. ZANTAC [Concomitant]
  11. LEVAQUIN [Concomitant]
  12. OSTEO BI-FLEX [Concomitant]
  13. OXYGEN [Concomitant]

REACTIONS (1)
  - PNEUMONIA [None]
